FAERS Safety Report 9437196 (Version 3)
Quarter: 2014Q3

REPORT INFORMATION
  Report Type: Report from Study
  Country: ZA (occurrence: ZA)
  Receive Date: 20130802
  Receipt Date: 20140714
  Transmission Date: 20150326
  Serious: Yes (Other)
  Sender: FDA-Public Use
  Company Number: PHHY2013ZA082431

PATIENT
  Age: 76 Year
  Sex: Female

DRUGS (12)
  1. PROTOS (PROTOPORPHYRIN DISODIUM) [Concomitant]
     Dosage: UNK UKN, UNK
  2. CILAZAPRIL [Concomitant]
     Active Substance: CILAZAPRIL ANHYDROUS
     Dosage: 5 MG, 1/4 DAILY
     Dates: start: 2011
  3. ELTROXIN [Concomitant]
     Active Substance: LEVOTHYROXINE
     Indication: HYPOTHYROIDISM
     Dosage: 0.05 MG, DAILY
     Dates: start: 2013
  4. LASIX [Concomitant]
     Active Substance: FUROSEMIDE
     Dosage: 40 MG, UNK
  5. ACLASTA [Suspect]
     Active Substance: ZOLEDRONIC ACID
     Indication: OSTEOPOROSIS
     Dosage: 5 MG, ONCE A YEAR
     Route: 042
     Dates: start: 201207
  6. ACLASTA [Suspect]
     Active Substance: ZOLEDRONIC ACID
     Dosage: 5 MG, UNK
     Route: 042
     Dates: start: 20140702
  7. FOSAVANCE [Concomitant]
     Active Substance: ALENDRONATE SODIUM\CHOLECALCIFEROL
     Indication: OSTEOPOROSIS
     Dosage: 70 MG, WEEKLY
  8. CONCOR [Concomitant]
     Active Substance: BISOPROLOL FUMARATE
     Dosage: 2.5 MG, UNK
     Dates: start: 2013
  9. SPIRACTIN//PIMECLONE HYDROCHLORIDE [Concomitant]
     Indication: ESSENTIAL HYPERTENSION
     Dosage: 25 MG, UNK
     Dates: start: 2013
  10. PURESIS [Concomitant]
     Active Substance: FUROSEMIDE
     Dosage: 40 MG, 1/2 DAILY
     Dates: start: 2011
  11. PERINDOPRIL [Concomitant]
     Active Substance: PERINDOPRIL
     Indication: HYPERTENSION
     Dosage: 4 MG, UNK
     Dates: start: 2013
  12. ADCO-ATENOLOL [Concomitant]
     Dosage: 50 MG, 1/2 DAILY
     Dates: start: 2011

REACTIONS (7)
  - Fall [Recovering/Resolving]
  - Joint swelling [Recovering/Resolving]
  - Joint injury [Recovering/Resolving]
  - Ligament rupture [Recovering/Resolving]
  - Osteoporosis [Recovering/Resolving]
  - Contusion [Recovering/Resolving]
  - Gait disturbance [Recovering/Resolving]
